FAERS Safety Report 5202606-9 (Version None)
Quarter: 2006Q4

REPORT INFORMATION
  Report Type: 
  Country: None (occurrence: None)
  Receive Date: 20061016
  Receipt Date: 20060822
  Transmission Date: 20070319
  Serious: No
  Sender: FDA-Public Use
  Company Number: 2006SP003090

PATIENT
  Age: 57 Year
  Sex: Female
  Weight: 54.4316 kg

DRUGS (9)
  1. LUNESTA [Suspect]
     Indication: INSOMNIA
     Dosage: SEE IMAGE
     Route: 048
     Dates: start: 20050601, end: 20050801
  2. LUNESTA [Suspect]
     Indication: INSOMNIA
     Dosage: SEE IMAGE
     Route: 048
     Dates: start: 20050801
  3. CYMBALTA [Concomitant]
  4. CLONAZEPAM [Concomitant]
  5. SIMVASTATIN [Concomitant]
  6. SINGULAIR [Concomitant]
  7. ESTRADIOL [Concomitant]
  8. LISINOPRIL [Concomitant]
  9. FOCALIN [Concomitant]

REACTIONS (2)
  - DRUG TOLERANCE [None]
  - INSOMNIA [None]
